FAERS Safety Report 13390854 (Version 1)
Quarter: 2017Q1

REPORT INFORMATION
  Report Type: Spontaneous
  Country: NL (occurrence: NL)
  Receive Date: 20170331
  Receipt Date: 20170331
  Transmission Date: 20170429
  Serious: Yes (Death, Life-Threatening, Hospitalization)
  Sender: FDA-Public Use
  Company Number: NL-TEVA-754585ACC

PATIENT
  Age: 70 Year
  Sex: Female
  Weight: 79 kg

DRUGS (3)
  1. PREDNISOLON CAPSULE 20MG FNA MR [Suspect]
     Active Substance: PREDNISOLONE
     Indication: ACUTE GENERALISED EXANTHEMATOUS PUSTULOSIS
     Dosage: 40 MILLIGRAM DAILY;
     Route: 048
  2. SERETIDE AEROSOL 25/ 50MCG/DO CFKVR SPBS 120DO+INH [Concomitant]
     Route: 055
  3. METHOTREXATE (METHOTREXATE SODIUM) [Suspect]
     Active Substance: METHOTREXATE SODIUM
     Indication: ACUTE GENERALISED EXANTHEMATOUS PUSTULOSIS

REACTIONS (3)
  - Respiratory failure [Fatal]
  - Decreased immune responsiveness [Unknown]
  - Pneumonia [Unknown]

NARRATIVE: CASE EVENT DATE: 201701
